FAERS Safety Report 4867761-9 (Version None)
Quarter: 2005Q4

REPORT INFORMATION
  Report Type: 
  Country: None (occurrence: None)
  Receive Date: 20051227
  Receipt Date: 20051227
  Transmission Date: 20060501
  Serious: Yes (Other)
  Sender: FDA-Public Use
  Company Number: None

PATIENT
  Sex: Male
  Weight: 94.3482 kg

DRUGS (4)
  1. TRICOR [Suspect]
     Indication: LIPIDS INCREASED
     Dosage: ONCE A DAY
     Dates: start: 20051119, end: 20051129
  2. TOPROL-XL [Concomitant]
  3. TYLENOL [Concomitant]
  4. COUMADIN [Concomitant]

REACTIONS (2)
  - JOINT SWELLING [None]
  - PAIN IN EXTREMITY [None]
